FAERS Safety Report 17573590 (Version 2)
Quarter: 2020Q2

REPORT INFORMATION
  Report Type: Report from Study
  Country: CA (occurrence: CA)
  Receive Date: 20200323
  Receipt Date: 20200421
  Transmission Date: 20200713
  Serious: Yes (Other)
  Sender: FDA-Public Use
  Company Number: CA-NALPROPION PHARMACEUTICALS INC.-2020-009927

PATIENT

DRUGS (8)
  1. CONTRAVE [Suspect]
     Active Substance: BUPROPION HYDROCHLORIDE\NALTREXONE HYDROCHLORIDE
     Dosage: 90 MG / 8 MG APPROX, 15/NOV/2019 TO 21/NOV/2019 2 TABLET IN THE MORNING AND ONE TAB IN THE EVENING
     Route: 048
     Dates: start: 201911, end: 201911
  2. NOVORAPID [Concomitant]
     Active Substance: INSULIN ASPART
     Indication: DIABETES MELLITUS
     Dosage: 12 CC (2 IN 1 D) (ROUTE: INJECTION)
     Route: 050
  3. NPH INSULIN [Concomitant]
     Active Substance: INSULIN BEEF
     Indication: DIABETES MELLITUS
     Dosage: 12 CC, LUNCH TIME (ROUTE: INJECTION)
     Route: 050
  4. LEVEMIR [Concomitant]
     Active Substance: INSULIN DETEMIR
     Indication: DIABETES MELLITUS
     Dosage: 8 UNITS, EVENING (ROUTE: INJECTION)
     Route: 050
  5. CONTRAVE [Suspect]
     Active Substance: BUPROPION HYDROCHLORIDE\NALTREXONE HYDROCHLORIDE
     Dosage: 90 MG / 8 MG, 2 TABLETS MORNING AND 1 TABLETS EVENING
     Route: 048
     Dates: start: 20200309
  6. CONTRAVE [Suspect]
     Active Substance: BUPROPION HYDROCHLORIDE\NALTREXONE HYDROCHLORIDE
     Indication: WEIGHT CONTROL
     Dosage: 90 MG / 8 MG, APPROXIMATELY 01/NOV/2019 TO 07/NOV/2019 (1 DOSAGE FORMS, 1 IN 1 D)
     Route: 048
     Dates: start: 2019, end: 201911
  7. CONTRAVE [Suspect]
     Active Substance: BUPROPION HYDROCHLORIDE\NALTREXONE HYDROCHLORIDE
     Dosage: 90 MG / 8 MG, APPROXIMATELY 08/NOV/2019 TO 14/NOV/2019 (1 DOSAGE FORMS, 2 IN 1 D)
     Route: 048
     Dates: start: 201911, end: 201911
  8. CONTRAVE [Suspect]
     Active Substance: BUPROPION HYDROCHLORIDE\NALTREXONE HYDROCHLORIDE
     Dosage: 90 MG / 8 MG APPROX, 22/NOV/2019 TO 08/MAR/2020 (2 DOSAGE FORMS, 2 IN 1 D)
     Route: 048
     Dates: start: 201911, end: 202003

REACTIONS (4)
  - Blood glucose decreased [Unknown]
  - Stubbornness [Unknown]
  - Condition aggravated [Unknown]
  - Constipation [Unknown]
